FAERS Safety Report 5666334 (Version 6)
Quarter: 2014Q3

REPORT INFORMATION
  Report Type: Spontaneous
  Country: US (occurrence: US)
  Receive Date: 20040920
  Receipt Date: 20140926
  Transmission Date: 20150326
  Serious: Yes (Death, Other)
  Sender: FDA-Public Use
  Company Number: PHEH2004US07121

PATIENT
  Age: 60 Year
  Sex: Female

DRUGS (11)
  1. ZOMETA [Suspect]
     Active Substance: ZOLEDRONIC ACID
     Indication: METASTASES TO BONE
     Dosage: 4 MG, QMO
     Route: 042
     Dates: start: 20011219, end: 20040525
  2. FLUOXETINE [Concomitant]
     Active Substance: FLUOXETINE\FLUOXETINE HYDROCHLORIDE
     Dosage: 20 MG, QD
  3. LISINOPRIL. [Concomitant]
     Active Substance: LISINOPRIL
     Dosage: 10 MG, QD
  4. AREDIA [Suspect]
     Active Substance: PAMIDRONATE DISODIUM
     Indication: BREAST CANCER METASTATIC
     Route: 042
     Dates: start: 20010313, end: 20011018
  5. GLYBURIDE. [Concomitant]
     Active Substance: GLYBURIDE
     Dosage: 5 MG, BID
  6. ASPIRIN ^BAYER^ [Concomitant]
     Active Substance: ASPIRIN
     Dosage: 81 MG, QD
  7. AREDIA [Suspect]
     Active Substance: PAMIDRONATE DISODIUM
     Indication: METASTASES TO BONE
     Dosage: 90 MG, QMO
     Route: 042
     Dates: start: 2000
  8. ARIMIDEX [Concomitant]
     Active Substance: ANASTROZOLE
     Dosage: 1 MG, QD
     Route: 048
     Dates: start: 200001
  9. PEPCID AC [Concomitant]
     Active Substance: FAMOTIDINE
     Dosage: 10 MG, BID
  10. XYLOCAINE [Concomitant]
     Active Substance: LIDOCAINE HYDROCHLORIDE
     Dosage: UNK UKN, UNK
  11. AMITRIPTYLINE [Concomitant]
     Active Substance: AMITRIPTYLINE
     Dosage: 75 MG, BID

REACTIONS (59)
  - Osteomyelitis [Unknown]
  - Actinomycosis [Unknown]
  - Gingival inflammation [Not Recovered/Not Resolved]
  - Purulent discharge [Unknown]
  - Spinal osteoarthritis [Unknown]
  - Neutropenia [Unknown]
  - Musculoskeletal chest pain [Unknown]
  - Metastatic neoplasm [Fatal]
  - Dental caries [Not Recovered/Not Resolved]
  - Osteosclerosis [Unknown]
  - Ecchymosis [Unknown]
  - Osteoarthritis [Unknown]
  - Exostosis [Unknown]
  - Osteoarthropathy [Unknown]
  - Spondylolisthesis [Unknown]
  - Discomfort [Unknown]
  - Tricuspid valve incompetence [Unknown]
  - Headache [Unknown]
  - Bone pain [Unknown]
  - Oropharyngeal pain [Unknown]
  - Back pain [Unknown]
  - Tooth abscess [Unknown]
  - Oroantral fistula [Not Recovered/Not Resolved]
  - Hyperglycaemia [Unknown]
  - Tooth infection [Unknown]
  - Vertebral foraminal stenosis [Unknown]
  - Mitral valve incompetence [Unknown]
  - Haematoma [Unknown]
  - Erythema [Unknown]
  - Osteoporosis [Unknown]
  - Oropharyngeal candidiasis [Unknown]
  - Fall [Unknown]
  - Musculoskeletal discomfort [Unknown]
  - Local swelling [Unknown]
  - Osteonecrosis of jaw [Recovering/Resolving]
  - Pain [Unknown]
  - Impaired healing [Not Recovered/Not Resolved]
  - Tooth loss [Unknown]
  - Sinusitis [Unknown]
  - Intervertebral disc space narrowing [Unknown]
  - Sciatica [Unknown]
  - Confusional state [Unknown]
  - Spinal compression fracture [Unknown]
  - Contusion [Unknown]
  - Bone cyst [Unknown]
  - Aortic valve incompetence [Unknown]
  - Stress [Unknown]
  - Dizziness [Unknown]
  - Cardio-respiratory arrest [Fatal]
  - Sinus polyp [Unknown]
  - Aortic disorder [Unknown]
  - Intervertebral disc degeneration [Unknown]
  - Lipoma [Unknown]
  - Aortic calcification [Unknown]
  - Dermatitis [Unknown]
  - Tooth impacted [Unknown]
  - Skin lesion [Unknown]
  - Left atrial dilatation [Unknown]
  - Dyspnoea [Unknown]

NARRATIVE: CASE EVENT DATE: 200404
